FAERS Safety Report 13762408 (Version 1)
Quarter: 2017Q3

REPORT INFORMATION
  Report Type: Spontaneous
  Country: US (occurrence: US)
  Receive Date: 20170717
  Receipt Date: 20170717
  Transmission Date: 20171127
  Serious: No
  Sender: FDA-Public Use
  Company Number: None

PATIENT
  Age: 22 Year
  Sex: Female

DRUGS (1)
  1. FERRIC CARBOXYMALTOSE [Suspect]
     Active Substance: FERRIC CARBOXYMALTOSE

REACTIONS (9)
  - Angioedema [None]
  - Anaphylactic reaction [None]
  - Throat tightness [None]
  - Sinus arrhythmia [None]
  - Urticaria [None]
  - Abdominal pain [None]
  - Oropharyngeal pain [None]
  - Chest pain [None]
  - Pruritus [None]

NARRATIVE: CASE EVENT DATE: 20170509
